FAERS Safety Report 9842251 (Version 1)
Quarter: 2014Q1

REPORT INFORMATION
  Report Type: Spontaneous
  Country: CH (occurrence: CH)
  Receive Date: 20140124
  Receipt Date: 20140124
  Transmission Date: 20141002
  Serious: Yes (Death)
  Sender: FDA-Public Use
  Company Number: CH-GLAXOSMITHKLINE-B0963195A

PATIENT
  Age: 18 Year
  Sex: Male

DRUGS (6)
  1. ZOFRAN [Suspect]
     Indication: PRODUCT USED FOR UNKNOWN INDICATION
     Dosage: 4MG TWICE PER DAY
     Route: 048
     Dates: start: 20131018, end: 20131023
  2. NEXAVAR [Suspect]
     Indication: HEPATIC CANCER
     Dosage: 200MG TWICE PER DAY
     Route: 048
     Dates: start: 20131018, end: 20131023
  3. PANTOZOL [Suspect]
     Indication: PRODUCT USED FOR UNKNOWN INDICATION
     Dosage: 40MG PER DAY
     Route: 048
     Dates: start: 201310, end: 20131102
  4. PRIMPERAN [Suspect]
     Indication: PRODUCT USED FOR UNKNOWN INDICATION
     Dosage: 10MG PER DAY
     Route: 048
     Dates: start: 201310, end: 20131102
  5. MOVICOL [Suspect]
     Indication: PRODUCT USED FOR UNKNOWN INDICATION
     Dosage: 1U PER DAY
     Route: 048
     Dates: start: 201310, end: 20131102
  6. MORPHINE SULFATE [Suspect]
     Indication: PRODUCT USED FOR UNKNOWN INDICATION
     Dosage: 20MG TWICE PER DAY
     Route: 048
     Dates: start: 201310, end: 20131102

REACTIONS (3)
  - Hepatocellular injury [Fatal]
  - Hepatic failure [Fatal]
  - Renal failure acute [Fatal]
